FAERS Safety Report 7565649-6 (Version None)
Quarter: 2011Q2

REPORT INFORMATION
  Report Type: 
  Country: None (occurrence: None)
  Receive Date: 20110616
  Receipt Date: 20110607
  Transmission Date: 20111010
  Serious: Yes (Life-Threatening)
  Sender: FDA-Public Use
  Company Number: 2011ST000139

PATIENT
  Age: 26 Year
  Sex: Male

DRUGS (1)
  1. ABELCET [Suspect]
     Indication: PRODUCT USED FOR UNKNOWN INDICATION
     Dosage: IV
     Route: 042

REACTIONS (2)
  - DRUG HYPERSENSITIVITY [None]
  - PYREXIA [None]
